FAERS Safety Report 8499785-7 (Version None)
Quarter: 2012Q3

REPORT INFORMATION
  Report Type: 
  Country: None (occurrence: None)
  Receive Date: 20120710
  Receipt Date: 20120702
  Transmission Date: 20120928
  Serious: Yes (Hospitalization)
  Sender: FDA-Public Use
  Company Number: JP-SANOFI-AVENTIS-2011SA064031

PATIENT
  Age: 72 Year
  Sex: Male
  Weight: 53 kg

DRUGS (43)
  1. ELOXATIN [Suspect]
     Route: 041
     Dates: start: 20110421, end: 20110421
  2. ELOXATIN [Suspect]
     Dosage: 12 SEP 2011: 11TH CYCLE ADMINISTERED.
     Route: 041
     Dates: start: 20110704, end: 20110704
  3. FLUOROURACIL [Suspect]
     Dosage: D1-2
     Route: 040
     Dates: start: 20110801, end: 20110801
  4. FLUOROURACIL [Suspect]
     Dosage: D1-2
     Route: 041
     Dates: start: 20110523, end: 20110523
  5. FLUOROURACIL [Suspect]
     Dosage: D1-2
     Route: 041
     Dates: start: 20110801, end: 20110801
  6. FLUOROURACIL [Suspect]
     Dosage: D1-2
     Route: 041
     Dates: start: 20110815, end: 20110815
  7. DEXAMETHASONE SODIUM PHOSPHATE [Concomitant]
     Indication: PREMEDICATION
     Route: 041
     Dates: start: 20110421, end: 20110912
  8. ELOXATIN [Suspect]
     Dosage: 12 SEP 2011: 11TH CYCLE ADMINISTERED.
     Route: 041
     Dates: start: 20110912, end: 20110912
  9. FLUOROURACIL [Suspect]
     Dosage: D1-2
     Route: 040
     Dates: start: 20110704, end: 20110704
  10. FLUOROURACIL [Suspect]
     Dosage: D1-2
     Route: 040
     Dates: start: 20110829, end: 20110829
  11. AMARYL [Concomitant]
     Indication: DIABETES MELLITUS
     Route: 048
  12. ELOXATIN [Suspect]
     Dosage: 12 SEP 2011: 11TH CYCLE ADMINISTERED.
     Route: 041
     Dates: start: 20110523, end: 20110523
  13. FLUOROURACIL [Suspect]
     Dosage: D1-2
     Route: 041
     Dates: start: 20110421, end: 20110421
  14. FLUOROURACIL [Suspect]
     Dosage: D1-2
     Route: 041
     Dates: start: 20110606, end: 20110606
  15. FLUOROURACIL [Suspect]
     Dosage: D1-2
     Route: 041
     Dates: start: 20110704, end: 20110704
  16. FLUOROURACIL [Suspect]
     Dosage: D1-2
     Route: 040
     Dates: start: 20110815, end: 20110815
  17. MAGNESIUM OXIDE [Concomitant]
     Route: 048
     Dates: start: 20110401
  18. ELOXATIN [Suspect]
     Dosage: 12 SEP 2011: 11TH CYCLE ADMINISTERED.
     Route: 041
     Dates: start: 20110620, end: 20110620
  19. FLUOROURACIL [Suspect]
     Dosage: D1-2
     Route: 040
     Dates: start: 20110620, end: 20110620
  20. FLUOROURACIL [Suspect]
     Dosage: D1-2
     Route: 041
     Dates: start: 20110620, end: 20110620
  21. FLUOROURACIL [Suspect]
     Dosage: D1-2
     Route: 041
     Dates: start: 20110829, end: 20110829
  22. IMIDAPRIL HYDROCHLORIDE [Concomitant]
     Route: 048
     Dates: start: 20110401
  23. ELOXATIN [Suspect]
     Dosage: 12 SEP 2011: 11TH CYCLE ADMINISTERED.
     Route: 041
     Dates: start: 20110719, end: 20110719
  24. FLUOROURACIL [Suspect]
     Dosage: D1-2
     Route: 040
     Dates: start: 20110509, end: 20110509
  25. FLUOROURACIL [Suspect]
     Dosage: D1-2
     Route: 040
     Dates: start: 20110523, end: 20110523
  26. FLUOROURACIL [Suspect]
     Dosage: D1-2
     Route: 040
     Dates: start: 20110719, end: 20110719
  27. LEUCOVORIN CALCIUM [Concomitant]
     Indication: COLON CANCER
     Route: 041
     Dates: start: 20110421, end: 20110912
  28. AMLODIPINE [Concomitant]
     Route: 048
     Dates: start: 20110401
  29. SENNOSIDE A+B [Concomitant]
     Route: 048
     Dates: start: 20110401
  30. PARULEON [Concomitant]
     Route: 048
     Dates: start: 20110401
  31. GASMOTIN [Concomitant]
     Route: 048
  32. ELOXATIN [Suspect]
     Indication: COLON CANCER
     Route: 041
     Dates: start: 20110509, end: 20110509
  33. ELOXATIN [Suspect]
     Dosage: 12 SEP 2011: 11TH CYCLE ADMINISTERED.
     Route: 041
     Dates: start: 20110829, end: 20110829
  34. FLUOROURACIL [Suspect]
     Dosage: D1-2
     Route: 041
     Dates: start: 20110509, end: 20110509
  35. FLUOROURACIL [Suspect]
     Dosage: D1-2
     Route: 040
     Dates: start: 20110606, end: 20110606
  36. FLUOROURACIL [Suspect]
     Dosage: D1-2
     Route: 041
     Dates: start: 20110719, end: 20110719
  37. ALLEGRA [Concomitant]
     Route: 048
  38. ELOXATIN [Suspect]
     Dosage: 12 SEP 2011: 11TH CYCLE ADMINISTERED.
     Route: 041
     Dates: start: 20110606, end: 20110606
  39. ELOXATIN [Suspect]
     Dosage: 12 SEP 2011: 11TH CYCLE ADMINISTERED.
     Route: 041
     Dates: start: 20110801, end: 20110801
  40. ELOXATIN [Suspect]
     Dosage: 12 SEP 2011: 11TH CYCLE ADMINISTERED.
     Route: 041
     Dates: start: 20110815, end: 20110815
  41. FLUOROURACIL [Suspect]
     Indication: COLON CANCER
     Route: 040
     Dates: start: 20110421, end: 20110421
  42. EMEND [Concomitant]
     Indication: PROPHYLAXIS
     Dosage: 125-80 MG
     Route: 048
     Dates: start: 20110829, end: 20110914
  43. BROTIZOLAM [Concomitant]
     Route: 048
     Dates: start: 20110401

REACTIONS (5)
  - NEUTROPHIL COUNT DECREASED [None]
  - NEUROPATHY PERIPHERAL [None]
  - DECREASED APPETITE [None]
  - WHITE BLOOD CELL COUNT DECREASED [None]
  - LEUKOENCEPHALOPATHY [None]
